FAERS Safety Report 10583655 (Version 1)
Quarter: 2014Q4

REPORT INFORMATION
  Report Type: Spontaneous
  Country: JP (occurrence: None)
  Receive Date: 20141112
  Receipt Date: 20141112
  Transmission Date: 20150529
  Serious: Yes (Other)
  Sender: FDA-Public Use
  Company Number: JJP-017682

PATIENT
  Age: 79 Year
  Sex: Male

DRUGS (1)
  1. DEGARELIX (GONAX) 240 MG [Suspect]
     Active Substance: DEGARELIX
     Indication: PRODUCT USED FOR UNKNOWN INDICATION
     Route: 058
     Dates: start: 20141030, end: 20141030

REACTIONS (2)
  - Blood uric acid increased [None]
  - Acute kidney injury [None]
